FAERS Safety Report 10080730 (Version 3)
Quarter: 2015Q1

REPORT INFORMATION
  Report Type: Spontaneous
  Country: US (occurrence: US)
  Receive Date: 20140416
  Receipt Date: 20150303
  Transmission Date: 20150720
  Serious: Yes (Hospitalization, Other)
  Sender: FDA-Public Use
  Company Number: US-BAYER-2014-055497

PATIENT
  Age: 18 Year
  Sex: Female
  Weight: 95.24 kg

DRUGS (3)
  1. ADVIL [Concomitant]
     Active Substance: IBUPROFEN
     Indication: HEADACHE
  2. ADVIL [Concomitant]
     Active Substance: IBUPROFEN
     Indication: MUSCLE SPASMS
  3. YAZ [Suspect]
     Active Substance: DROSPIRENONE\ETHINYL ESTRADIOL
     Dosage: UNK
     Dates: start: 200208

REACTIONS (6)
  - Cerebrovascular accident [None]
  - Pulmonary embolism [Recovered/Resolved]
  - Injury [None]
  - Deep vein thrombosis [None]
  - Thrombosis [None]
  - Pain [None]

NARRATIVE: CASE EVENT DATE: 20021020
